FAERS Safety Report 4366729-9 (Version None)
Quarter: 2004Q2

REPORT INFORMATION
  Report Type: 
  Country: None (occurrence: None)
  Receive Date: 20040527
  Receipt Date: 20040519
  Transmission Date: 20050107
  Serious: Yes (Hospitalization)
  Sender: FDA-Public Use
  Company Number: FR-MERCK-0405FRA00068

PATIENT
  Age: 63 Year
  Sex: Male

DRUGS (7)
  1. AMIODARONE [Concomitant]
     Indication: ATRIAL FIBRILLATION
     Route: 048
     Dates: start: 20020615, end: 20030407
  2. COZAAR [Suspect]
     Indication: HYPERTENSION
     Route: 048
     Dates: start: 19970630, end: 20030604
  3. COZAAR [Suspect]
     Route: 048
     Dates: start: 20040101
  4. NIFLUMIC ACID [Concomitant]
     Route: 061
     Dates: start: 20021101, end: 20021101
  5. RAMIPRIL [Concomitant]
     Indication: HYPERTENSION
     Route: 048
     Dates: end: 20030407
  6. SOTALOL HYDROCHLORIDE [Concomitant]
     Indication: HYPERTENSION
     Route: 048
     Dates: end: 20030615
  7. SPIRONOLACTONE [Concomitant]
     Indication: HYPERTENSION
     Route: 048
     Dates: end: 20030407

REACTIONS (3)
  - BLOOD IMMUNOGLOBULIN E INCREASED [None]
  - ECZEMA [None]
  - XEROSIS [None]
